FAERS Safety Report 8331193-1 (Version None)
Quarter: 2012Q2

REPORT INFORMATION
  Report Type: 
  Country: None (occurrence: None)
  Receive Date: 20120502
  Receipt Date: 20120413
  Transmission Date: 20120825
  Serious: No
  Sender: FDA-Public Use
  Company Number: US-AMGEN-USASP2012023631

PATIENT
  Age: 57 Year
  Sex: Female

DRUGS (1)
  1. ENBREL [Suspect]
     Indication: PSORIASIS
     Dosage: 50 MG, QWK
     Dates: start: 20090616

REACTIONS (10)
  - PSORIASIS [None]
  - GAIT DISTURBANCE [None]
  - PAIN IN EXTREMITY [None]
  - SINUSITIS [None]
  - NASAL CONGESTION [None]
  - DYSPNOEA [None]
  - RHINORRHOEA [None]
  - RASH [None]
  - HAEMORRHAGE [None]
  - DRUG INEFFECTIVE [None]
